FAERS Safety Report 6769861-5 (Version None)
Quarter: 2010Q2

REPORT INFORMATION
  Report Type: 
  Country: None (occurrence: None)
  Receive Date: 20100615
  Receipt Date: 20100610
  Transmission Date: 20101027
  Serious: Yes (Death, Hospitalization, Other)
  Sender: FDA-Public Use
  Company Number: US-ABBOTT-10P-163-0637220-00

PATIENT
  Sex: Female
  Weight: 90.346 kg

DRUGS (4)
  1. HUMIRA [Suspect]
     Indication: RHEUMATOID ARTHRITIS
     Dates: start: 20080701, end: 20100201
  2. HUMIRA [Suspect]
     Dates: start: 20100311, end: 20100323
  3. METHOTREXATE [Concomitant]
     Indication: DRUG USE FOR UNKNOWN INDICATION
     Dates: end: 20100209
  4. METHOTREXATE [Concomitant]
     Dates: start: 20100311

REACTIONS (3)
  - ACUTE CORONARY SYNDROME [None]
  - APLASTIC ANAEMIA [None]
  - RENAL FAILURE [None]
